FAERS Safety Report 7718567-4 (Version None)
Quarter: 2011Q3

REPORT INFORMATION
  Report Type: 
  Country: None (occurrence: None)
  Receive Date: 20110830
  Receipt Date: 20110816
  Transmission Date: 20111222
  Serious: Yes (Other)
  Sender: FDA-Public Use
  Company Number: US-ELI_LILLY_AND_COMPANY-US201101002438

PATIENT
  Sex: Female

DRUGS (3)
  1. FORTEO [Suspect]
     Indication: OSTEOPOROSIS
     Dosage: 20 UG, QD
     Route: 058
  2. CRESTOR [Concomitant]
     Dates: start: 20101001
  3. FORTEO [Suspect]
     Dosage: 20 UG, QD
     Route: 058

REACTIONS (15)
  - MUSCLE SPASMS [None]
  - CONFUSIONAL STATE [None]
  - HEART VALVE INCOMPETENCE [None]
  - INJECTION SITE HAEMORRHAGE [None]
  - HEART RATE INCREASED [None]
  - MYALGIA [None]
  - INJECTION SITE ERYTHEMA [None]
  - AGITATION [None]
  - NECK PAIN [None]
  - MUSCULAR WEAKNESS [None]
  - NAUSEA [None]
  - FATIGUE [None]
  - BACK PAIN [None]
  - ADVERSE EVENT [None]
  - TOOTH FRACTURE [None]
